FAERS Safety Report 12656525 (Version 2)
Quarter: 2016Q3

REPORT INFORMATION
  Report Type: Report from Study
  Country: BR (occurrence: BR)
  Receive Date: 20160816
  Receipt Date: 20160826
  Transmission Date: 20161109
  Serious: Yes (Hospitalization)
  Sender: FDA-Public Use
  Company Number: PHHY2016BR110407

PATIENT
  Sex: Female
  Weight: 48 kg

DRUGS (2)
  1. FOLIC ACID. [Concomitant]
     Active Substance: FOLIC ACID
     Indication: SICKLE CELL ANAEMIA
     Dosage: 1 DF, QD
     Route: 048
  2. EXJADE [Suspect]
     Active Substance: DEFERASIROX
     Indication: SICKLE CELL ANAEMIA
     Dosage: 15 MG/KG, QD (1 TABLET OF 500 MG AND 1 TABLET OF 250 MG IN THE MORNING)
     Route: 065

REACTIONS (3)
  - Maternal exposure during pregnancy [Unknown]
  - Malaise [Recovered/Resolved]
  - Nausea [Recovered/Resolved]
